FAERS Safety Report 24914373 (Version 1)
Quarter: 2025Q1

REPORT INFORMATION
  Report Type: Spontaneous
  Country: US (occurrence: US)
  Receive Date: 20250203
  Receipt Date: 20250203
  Transmission Date: 20250409
  Serious: No
  Sender: ENDO
  Company Number: US-ENDO USA, INC.-2024-050254

PATIENT
  Sex: Male

DRUGS (7)
  1. FORTESTA [Suspect]
     Active Substance: TESTOSTERONE
     Indication: Blood testosterone decreased
     Route: 065
     Dates: start: 2024
  2. FORTESTA [Suspect]
     Active Substance: TESTOSTERONE
     Indication: Blood testosterone decreased
     Route: 065
     Dates: start: 2024
  3. FORTESTA [Suspect]
     Active Substance: TESTOSTERONE
     Route: 065
     Dates: start: 20241017
  4. FORTESTA [Suspect]
     Active Substance: TESTOSTERONE
     Route: 065
     Dates: start: 20241017
  5. FORTESTA [Suspect]
     Active Substance: TESTOSTERONE
     Route: 065
  6. FORTESTA [Suspect]
     Active Substance: TESTOSTERONE
     Route: 065
  7. LOSARTAN [Concomitant]
     Active Substance: LOSARTAN
     Indication: Blood pressure abnormal
     Route: 065

REACTIONS (2)
  - Weight decreased [Unknown]
  - Expired product administered [Not Recovered/Not Resolved]

NARRATIVE: CASE EVENT DATE: 20240101
